FAERS Safety Report 7683770-9 (Version None)
Quarter: 2011Q3

REPORT INFORMATION
  Report Type: 
  Country: None (occurrence: None)
  Receive Date: 20110815
  Receipt Date: 20110805
  Transmission Date: 20111222
  Serious: Yes (Hospitalization, Other)
  Sender: FDA-Public Use
  Company Number: US-AMGEN-USASP2011006099

PATIENT
  Age: 80 Year
  Sex: Male

DRUGS (2)
  1. NPLATE [Suspect]
     Indication: IDIOPATHIC THROMBOCYTOPENIC PURPURA
     Dosage: 236 A?G, UNK
     Route: 058
     Dates: start: 20101223
  2. NPLATE [Suspect]
     Dosage: UNK
     Dates: start: 20101124

REACTIONS (4)
  - HYPOGONADISM [None]
  - PROSTATIC ADENOMA [None]
  - PLATELET COUNT DECREASED [None]
  - OEDEMA PERIPHERAL [None]
